FAERS Safety Report 6088258-7 (Version None)
Quarter: 2009Q1

REPORT INFORMATION
  Report Type: 
  Country: None (occurrence: None)
  Receive Date: 20090224
  Receipt Date: 20090213
  Transmission Date: 20090719
  Serious: Yes (Hospitalization)
  Sender: FDA-Public Use
  Company Number: JP-BAYER-200812696BYL

PATIENT
  Age: 70 Year
  Sex: Male
  Weight: 65 kg

DRUGS (11)
  1. NEXAVAR [Suspect]
     Indication: RENAL CELL CARCINOMA STAGE IV
     Dosage: UNIT DOSE: 200 MG
     Route: 048
     Dates: start: 20080829, end: 20081016
  2. NEXAVAR [Suspect]
     Dosage: UNIT DOSE: 200 MG
     Route: 048
     Dates: start: 20081029, end: 20090122
  3. AMLODIN [Concomitant]
     Indication: HYPERTENSION
     Route: 048
     Dates: start: 20080919, end: 20081121
  4. OXYCONTIN [Concomitant]
     Route: 048
     Dates: start: 20090109, end: 20090111
  5. NOVAMIN [Concomitant]
     Route: 048
     Dates: start: 20090109
  6. MAGNESIUM OXIDE [Concomitant]
     Route: 048
     Dates: start: 20090109, end: 20090112
  7. HYPEN [Concomitant]
     Route: 048
     Dates: start: 20090109
  8. SELBEX [Concomitant]
     Route: 048
     Dates: start: 20090109
  9. MAGLAX [Concomitant]
     Route: 048
     Dates: start: 20090112
  10. MEDICON [Concomitant]
     Route: 048
     Dates: start: 20090116
  11. SUTENT [Concomitant]
     Indication: RENAL CELL CARCINOMA STAGE IV

REACTIONS (4)
  - ANAEMIA [None]
  - DYSGEUSIA [None]
  - GASTRIC ULCER HAEMORRHAGE [None]
  - RENAL IMPAIRMENT [None]
